FAERS Safety Report 11516476 (Version 1)
Quarter: 2015Q3

REPORT INFORMATION
  Report Type: Spontaneous
  Country: US (occurrence: US)
  Receive Date: 20150917
  Receipt Date: 20150917
  Transmission Date: 20151125
  Serious: No
  Sender: FDA-Public Use
  Company Number: US-PFIZER INC-2015306911

PATIENT
  Age: 44 Year
  Sex: Female
  Weight: 61 kg

DRUGS (4)
  1. LYRICA [Suspect]
     Active Substance: PREGABALIN
     Indication: DIABETIC NEUROPATHY
     Dosage: 50 MG, 3X/DAY
  2. FENTANYL. [Interacting]
     Active Substance: FENTANYL
     Dosage: UNK
     Route: 062
  3. OXYCODONE [Interacting]
     Active Substance: OXYCODONE
     Dosage: UNK
  4. LYRICA [Interacting]
     Active Substance: PREGABALIN
     Indication: FIBROMYALGIA

REACTIONS (3)
  - Drug interaction [Unknown]
  - Dizziness [Unknown]
  - Pain [Unknown]
